FAERS Safety Report 17351530 (Version 5)
Quarter: 2020Q2

REPORT INFORMATION
  Report Type: Report from Study
  Country: US (occurrence: US)
  Receive Date: 20200130
  Receipt Date: 20200602
  Transmission Date: 20200713
  Serious: No
  Sender: FDA-Public Use
  Company Number: NVSC2020US021258

PATIENT
  Age: 73 Year
  Sex: Male

DRUGS (2)
  1. BEOVU [Suspect]
     Active Substance: BROLUCIZUMAB-DBLL
     Indication: AGE-RELATED MACULAR DEGENERATION
     Dosage: 6 MG (ONE SINGLE DOSE), LEFT EYE
     Route: 047
     Dates: start: 20200114
  2. BEOVU [Suspect]
     Active Substance: BROLUCIZUMAB-DBLL
     Dosage: 6 MG (ONE SINGLE DOSE), LEFT EYE
     Route: 047
     Dates: start: 20200124

REACTIONS (3)
  - Eye irritation [Unknown]
  - Vitreous floaters [Recovered/Resolved]
  - Visual impairment [Unknown]

NARRATIVE: CASE EVENT DATE: 20200124
